FAERS Safety Report 6916866-7 (Version None)
Quarter: 2010Q3

REPORT INFORMATION
  Report Type: 
  Country: None (occurrence: None)
  Receive Date: 20100810
  Receipt Date: 20100806
  Transmission Date: 20110219
  Serious: Yes (Death, Hospitalization)
  Sender: FDA-Public Use
  Company Number: GB-JNJFOC-20100802086

PATIENT
  Age: 34 Year
  Sex: Female
  Weight: 42.7 kg

DRUGS (4)
  1. RISPERDAL CONSTA [Suspect]
     Indication: SCHIZOAFFECTIVE DISORDER
     Route: 030
  2. ATROVENT [Concomitant]
     Indication: ASTHMA
     Route: 065
  3. BECOTIDE [Concomitant]
     Indication: ASTHMA
     Route: 065
  4. ALBUTEROL [Concomitant]
     Indication: ASTHMA
     Route: 055

REACTIONS (5)
  - DISSEMINATED INTRAVASCULAR COAGULATION [None]
  - GENERAL PHYSICAL HEALTH DETERIORATION [None]
  - IMPAIRED SELF-CARE [None]
  - INTESTINAL INFARCTION [None]
  - LIVER FUNCTION TEST ABNORMAL [None]
